FAERS Safety Report 23392193 (Version 1)
Quarter: 2024Q1

REPORT INFORMATION
  Report Type: Spontaneous
  Country: US (occurrence: US)
  Receive Date: 20240111
  Receipt Date: 20240111
  Transmission Date: 20240410
  Serious: No
  Sender: FDA-Public Use
  Company Number: US-PFIZER INC-PV202400002197

PATIENT
  Age: 21 Year
  Sex: Female

DRUGS (2)
  1. METOPROLOL TARTRATE [Interacting]
     Active Substance: METOPROLOL TARTRATE
     Dosage: UNK
  2. DULOXETINE [Interacting]
     Active Substance: DULOXETINE
     Dosage: UNK

REACTIONS (2)
  - Drug interaction [Unknown]
  - Dizziness postural [Unknown]
